FAERS Safety Report 25029029 (Version 3)
Quarter: 2025Q2

REPORT INFORMATION
  Report Type: Spontaneous
  Country: US (occurrence: US)
  Receive Date: 20250303
  Receipt Date: 20250612
  Transmission Date: 20250717
  Serious: No
  Sender: ROCHE
  Company Number: US-ROCHE-10000219314

PATIENT
  Sex: Female
  Weight: 96 kg

DRUGS (3)
  1. OCREVUS [Suspect]
     Active Substance: OCRELIZUMAB
     Indication: Multiple sclerosis
     Dosage: STRENGTH: 300MG/10ML SDV?LATEST ONSET DATE IF EVENT 15-NOV-2024
     Route: 042
     Dates: start: 202410
  2. OCREVUS [Suspect]
     Active Substance: OCRELIZUMAB
     Dosage: STRENGTH: 300MG/10ML SDV
     Route: 042
     Dates: start: 202410
  3. AMPYRA [Concomitant]
     Active Substance: DALFAMPRIDINE

REACTIONS (5)
  - Off label use [Unknown]
  - Tremor [Unknown]
  - Fatigue [Unknown]
  - Pain [Unknown]
  - Urinary incontinence [Unknown]
